FAERS Safety Report 11092541 (Version 2)
Quarter: 2015Q2

REPORT INFORMATION
  Report Type: Spontaneous
  Country: US (occurrence: US)
  Receive Date: 20150506
  Receipt Date: 20150623
  Transmission Date: 20150821
  Serious: Yes (Hospitalization)
  Sender: FDA-Public Use
  Company Number: US-BIOGENIDEC-2015BI058681

PATIENT
  Age: 42 Year
  Sex: Female

DRUGS (2)
  1. TECFIDERA [Suspect]
     Active Substance: DIMETHYL FUMARATE
     Indication: MULTIPLE SCLEROSIS
     Route: 048
  2. TECFIDERA [Suspect]
     Active Substance: DIMETHYL FUMARATE
     Indication: MULTIPLE SCLEROSIS
     Route: 048
     Dates: start: 201310

REACTIONS (13)
  - Abdominal distension [Recovered/Resolved]
  - Intentional underdose [Unknown]
  - Gastrointestinal disorder [Recovered/Resolved]
  - Gastrointestinal infection [Unknown]
  - Gastrointestinal tract irritation [Recovered/Resolved]
  - Infection [Unknown]
  - Intentional overdose [Unknown]
  - Diarrhoea [Unknown]
  - Overdose [Unknown]
  - Drug dose omission [Unknown]
  - Nausea [Unknown]
  - Dehydration [Unknown]
  - General symptom [Unknown]

NARRATIVE: CASE EVENT DATE: 201311
